FAERS Safety Report 8351196-0 (Version None)
Quarter: 2012Q2

REPORT INFORMATION
  Report Type: 
  Country: None (occurrence: None)
  Receive Date: 20120510
  Receipt Date: 20120507
  Transmission Date: 20120825
  Serious: Yes (Life-Threatening)
  Sender: FDA-Public Use
  Company Number: FR-ABBOTT-12P-056-0932964-00

PATIENT
  Sex: Female

DRUGS (3)
  1. HUMIRA [Suspect]
     Indication: PSORIATIC ARTHROPATHY
     Route: 058
     Dates: start: 20120326, end: 20120326
  2. SOLU-MEDROL [Concomitant]
     Indication: PREMEDICATION
     Dates: start: 20120326, end: 20120326
  3. POLARAMINE [Concomitant]
     Indication: PREMEDICATION
     Route: 042
     Dates: start: 20120326, end: 20120326

REACTIONS (2)
  - RESPIRATORY DISTRESS [None]
  - ANAPHYLACTIC SHOCK [None]
